FAERS Safety Report 17982385 (Version 1)
Quarter: 2020Q3

REPORT INFORMATION
  Report Type: Spontaneous
  Country: JP (occurrence: JP)
  Receive Date: 20200706
  Receipt Date: 20200706
  Transmission Date: 20201103
  Serious: Yes (Other)
  Sender: FDA-Public Use
  Company Number: JP-009507513-2006JPN002356J

PATIENT
  Age: 5 Decade
  Sex: Male

DRUGS (2)
  1. TEMODAL [Suspect]
     Active Substance: TEMOZOLOMIDE
     Indication: MALIGNANT GLIOMA
     Dosage: 200 MILLIGRAM/SQ. METER, QD (23 DAYS OFF AFTER 5 CONSECUTIVE DAYS OF ADMINISTRATION)
     Route: 065
  2. AVASTIN [Concomitant]
     Active Substance: BEVACIZUMAB
     Indication: MALIGNANT GLIOMA
     Dosage: UNK
     Route: 041

REACTIONS (1)
  - Lumbar vertebral fracture [Unknown]
